FAERS Safety Report 15218230 (Version 1)
Quarter: 2018Q3

REPORT INFORMATION
  Report Type: Report from Study
  Country: US (occurrence: US)
  Receive Date: 20180730
  Receipt Date: 20180730
  Transmission Date: 20181010
  Serious: No
  Sender: FDA-Public Use
  Company Number: US-AMGEN-USASL2018102423

PATIENT
  Age: 40 Year
  Sex: Female

DRUGS (4)
  1. ALCOHOL. [Suspect]
     Active Substance: ALCOHOL
     Indication: INJECTION SITE SWELLING
     Dosage: UNK
     Route: 065
     Dates: start: 201807
  2. ALCOHOL. [Suspect]
     Active Substance: ALCOHOL
     Indication: INJECTION SITE ERYTHEMA
  3. ALCOHOL. [Suspect]
     Active Substance: ALCOHOL
     Indication: INJECTION SITE PRURITUS
  4. ENBREL [Suspect]
     Active Substance: ETANERCEPT
     Indication: PSORIATIC ARTHROPATHY
     Dosage: 50 MG, QWK
     Route: 065

REACTIONS (4)
  - Injection site erythema [Unknown]
  - Wrong technique in product usage process [Unknown]
  - Injection site swelling [Unknown]
  - Injection site pruritus [Unknown]

NARRATIVE: CASE EVENT DATE: 201807
